FAERS Safety Report 15533401 (Version 3)
Quarter: 2018Q4

REPORT INFORMATION
  Report Type: Spontaneous
  Country: PL (occurrence: PL)
  Receive Date: 20181019
  Receipt Date: 20181212
  Transmission Date: 20190205
  Serious: Yes (Hospitalization)
  Sender: FDA-Public Use
  Company Number: PHHY2018PL129126

PATIENT
  Age: 42 Year
  Sex: Male

DRUGS (1)
  1. AXUDAN HCT [Suspect]
     Active Substance: HYDROCHLOROTHIAZIDE\VALSARTAN
     Indication: PRODUCT USED FOR UNKNOWN INDICATION
     Dosage: 1 DF OF (160/25) MG AND 1 DF OF (160/12.5) MG
     Route: 065
     Dates: start: 20160201, end: 20180709

REACTIONS (8)
  - Gastrooesophageal reflux disease [Unknown]
  - Depression [Unknown]
  - Malaise [Unknown]
  - Abdominal pain [Unknown]
  - Pancreatitis acute [Unknown]
  - Stress [Unknown]
  - Mental disorder [Unknown]
  - Gout [Unknown]

NARRATIVE: CASE EVENT DATE: 201710
